FAERS Safety Report 6164681-7 (Version None)
Quarter: 2009Q2

REPORT INFORMATION
  Report Type: 
  Country: None (occurrence: None)
  Receive Date: 20090423
  Receipt Date: 20090415
  Transmission Date: 20091009
  Serious: Yes (Death, Other)
  Sender: FDA-Public Use
  Company Number: GB-ROCHE-627432

PATIENT
  Age: 66 Year
  Sex: Male

DRUGS (12)
  1. XENICAL [Suspect]
     Indication: OBESITY
     Route: 065
  2. INSULIN ASPART [Concomitant]
     Dosage: DRUG REPORTED AS BIPHASIC INSULIN ASPART
  3. METFORMIN HCL [Concomitant]
  4. LISINOPRIL [Concomitant]
  5. ATORVASTATIN [Concomitant]
  6. ASPIRIN [Concomitant]
  7. DOXAZOSIN MESYLATE [Concomitant]
  8. FUROSEMIDE [Concomitant]
  9. VERAPAMIL [Concomitant]
  10. ISOSORBIDE MONONITRATE [Concomitant]
  11. LANSOPRAZOLE [Concomitant]
  12. PREGABALIN [Concomitant]

REACTIONS (3)
  - CARDIAC ARREST [None]
  - DEATH [None]
  - NEPHROPATHY [None]
